FAERS Safety Report 8298939-2 (Version None)
Quarter: 2012Q2

REPORT INFORMATION
  Report Type: 
  Country: None (occurrence: None)
  Receive Date: 20120419
  Receipt Date: 20120404
  Transmission Date: 20120825
  Serious: Yes (Death, Other)
  Sender: FDA-Public Use
  Company Number: US-WATSON-2012-06163

PATIENT
  Sex: Female

DRUGS (2)
  1. FENTANYL-50 [Suspect]
     Dosage: UNK
     Route: 062
     Dates: end: 20080717
  2. FENTANYL-50 [Suspect]
     Indication: PRODUCT USED FOR UNKNOWN INDICATION
     Dosage: UNK
     Route: 062
     Dates: start: 20080717, end: 20080724

REACTIONS (1)
  - UNRESPONSIVE TO STIMULI [None]
